FAERS Safety Report 10427195 (Version 1)
Quarter: 2014Q3

REPORT INFORMATION
  Report Type: Spontaneous
  Country: US (occurrence: None)
  Receive Date: 20140902
  Receipt Date: 20140902
  Transmission Date: 20150326
  Serious: Yes (Hospitalization, Disabling)
  Sender: FDA-Public Use
  Company Number: None

PATIENT
  Age: 54 Year
  Sex: Female
  Weight: 83.01 kg

DRUGS (1)
  1. METOPROLOL TARTRATE. [Suspect]
     Active Substance: METOPROLOL TARTRATE
     Indication: HYPERTENSION
     Dosage: METOPROLOL TARTRATE 25MG  TWICE DAILY TAKEN BY MOUTH
     Route: 048
     Dates: start: 20110526, end: 20140825

REACTIONS (8)
  - Amnesia [None]
  - Peripheral swelling [None]
  - Lung disorder [None]
  - Chronic obstructive pulmonary disease [None]
  - Insomnia [None]
  - Weight increased [None]
  - Dizziness [None]
  - Asthenia [None]

NARRATIVE: CASE EVENT DATE: 20140830
